FAERS Safety Report 13495513 (Version 4)
Quarter: 2017Q4

REPORT INFORMATION
  Report Type: Spontaneous
  Country: US (occurrence: US)
  Receive Date: 20170428
  Receipt Date: 20171110
  Transmission Date: 20180320
  Serious: Yes (Other)
  Sender: FDA-Public Use
  Company Number: US-TEVA-759823ACC

PATIENT
  Age: 58 Year
  Sex: Female

DRUGS (22)
  1. VENLAFAXINE [Concomitant]
     Active Substance: VENLAFAXINE HYDROCHLORIDE
  2. CARDIZEM [Concomitant]
     Active Substance: DILTIAZEM HYDROCHLORIDE
  3. POTASSIUM [Concomitant]
     Active Substance: POTASSIUM
  4. COPAXONE [Suspect]
     Active Substance: GLATIRAMER ACETATE
     Indication: MULTIPLE SCLEROSIS
     Route: 058
     Dates: start: 20160408
  5. CARTIA XT [Concomitant]
     Active Substance: DILTIAZEM HYDROCHLORIDE
  6. OXYBUTYNIN. [Concomitant]
     Active Substance: OXYBUTYNIN CHLORIDE
  7. PROCARDIA [Concomitant]
     Active Substance: NIFEDIPINE
  8. CALCIUM CARB [Concomitant]
  9. NAPROXEN SOD [Concomitant]
  10. CENTRUM [Concomitant]
     Active Substance: VITAMINS
  11. TAMSULOSIN [Concomitant]
     Active Substance: TAMSULOSIN
  12. BACLOFEN. [Concomitant]
     Active Substance: BACLOFEN
  13. CALCIUM+D [Concomitant]
     Active Substance: CALCIUM\VITAMIN D
  14. ATENOLOL. [Concomitant]
     Active Substance: ATENOLOL
  15. FORTEO [Concomitant]
     Active Substance: TERIPARATIDE
  16. LOSARTAN POTASSIUM W/HYDROCHLOROTHIAZIDE [Concomitant]
     Active Substance: HYDROCHLOROTHIAZIDE\LOSARTAN POTASSIUM
  17. PERCOCET [Concomitant]
     Active Substance: ACETAMINOPHEN\OXYCODONE HYDROCHLORIDE
  18. TIZANIDINE. [Concomitant]
     Active Substance: TIZANIDINE
  19. FOLIC ACID. [Concomitant]
     Active Substance: FOLIC ACID
  20. TENORMIN [Concomitant]
     Active Substance: ATENOLOL
  21. DETROL [Concomitant]
     Active Substance: TOLTERODINE TARTRATE
  22. VITAMIN D3 [Concomitant]
     Active Substance: CHOLECALCIFEROL

REACTIONS (7)
  - Motor dysfunction [Not Recovered/Not Resolved]
  - Multiple sclerosis relapse [Not Recovered/Not Resolved]
  - Fall [Not Recovered/Not Resolved]
  - White blood cell count decreased [Not Recovered/Not Resolved]
  - Fatigue [Not Recovered/Not Resolved]
  - Arthralgia [Not Recovered/Not Resolved]
  - Depression [Not Recovered/Not Resolved]

NARRATIVE: CASE EVENT DATE: 20170406
